FAERS Safety Report 12099777 (Version 1)
Quarter: 2016Q1

REPORT INFORMATION
  Report Type: Report from Study
  Country: IT (occurrence: IT)
  Receive Date: 20160222
  Receipt Date: 20160222
  Transmission Date: 20160526
  Serious: Yes (Death, Hospitalization, Other)
  Sender: FDA-Public Use
  Company Number: IT-CELGENE-083-21880-10060584

PATIENT

DRUGS (2)
  1. REVLIMID [Suspect]
     Active Substance: LENALIDOMIDE
     Indication: NON-HODGKIN^S LYMPHOMA
     Dosage: DAYS 1-21 EVERY 28 DAYS (FOR 6 CYCLES)
     Route: 048
  2. RITUXIMAB [Concomitant]
     Active Substance: RITUXIMAB
     Indication: NON-HODGKIN^S LYMPHOMA
     Dosage: DAY 14 OF EVERY COURSE (FOR 6 CYCLES)
     Route: 041

REACTIONS (19)
  - Tumour flare [Unknown]
  - Febrile neutropenia [Unknown]
  - Lung infection [Unknown]
  - Gastrointestinal disorder [Unknown]
  - Pyrexia [Unknown]
  - Infection [Unknown]
  - Cough [Unknown]
  - Renal failure [Unknown]
  - Hypersensitivity [Unknown]
  - Neuropathy peripheral [Unknown]
  - Death [Fatal]
  - Anaemia [Unknown]
  - Neutropenia [Unknown]
  - Thrombocytopenia [Unknown]
  - Bronchitis [Unknown]
  - Lymphoma [Fatal]
  - Dyspnoea [Unknown]
  - Fatigue [Unknown]
  - Erythema [Unknown]
